FAERS Safety Report 10169854 (Version 2)
Quarter: 2014Q2

REPORT INFORMATION
  Report Type: Spontaneous
  Country: US (occurrence: US)
  Receive Date: 20140513
  Receipt Date: 20140513
  Transmission Date: 20141212
  Serious: Yes (Death)
  Sender: FDA-Public Use
  Company Number: US-PFIZER INC-2013298791

PATIENT
  Sex: Female

DRUGS (2)
  1. LIPITOR [Suspect]
     Dosage: UNK
  2. MOTRIN [Suspect]
     Dosage: UNK

REACTIONS (1)
  - Hepatic failure [Fatal]
